FAERS Safety Report 21722258 (Version 1)
Quarter: 2022Q4

REPORT INFORMATION
  Report Type: Report from Study
  Country: US (occurrence: US)
  Receive Date: 20221213
  Receipt Date: 20221213
  Transmission Date: 20230113
  Serious: Yes (Other)
  Sender: FDA-Public Use
  Company Number: US-TAKEDA-2022TUS095142

PATIENT
  Sex: Female
  Weight: 138.32 kg

DRUGS (40)
  1. HUMAN IMMUNOGLOBULIN G\HYALURONIDASE RECOMBINANT HUMAN [Suspect]
     Active Substance: HUMAN IMMUNOGLOBULIN G\HYALURONIDASE RECOMBINANT HUMAN
     Indication: Immunodeficiency common variable
     Dosage: 80 GRAM
     Route: 058
     Dates: start: 20220715
  2. DIPHENHYDRAMINE [Concomitant]
     Active Substance: DIPHENHYDRAMINE
  3. TRELEGY ELLIPTA [Concomitant]
     Active Substance: FLUTICASONE FUROATE\UMECLIDINIUM BROMIDE\VILANTEROL TRIFENATATE
  4. VITAMIN D3 [Concomitant]
     Active Substance: CHOLECALCIFEROL
  5. BUPROPION [Concomitant]
     Active Substance: BUPROPION
  6. METOPROLOL SUCCINATE [Concomitant]
     Active Substance: METOPROLOL SUCCINATE
  7. EPINEPHRINE [Concomitant]
     Active Substance: EPINEPHRINE
  8. POTASSIUM CHLORIDE [Concomitant]
     Active Substance: POTASSIUM CHLORIDE
  9. RESTASIS [Concomitant]
     Active Substance: CYCLOSPORINE
  10. CALCIUM\CHOLECALCIFEROL [Concomitant]
     Active Substance: CALCIUM\CHOLECALCIFEROL
  11. IBUPROFEN [Concomitant]
     Active Substance: IBUPROFEN
  12. ATORVASTATIN CALCIUM [Concomitant]
     Active Substance: ATORVASTATIN CALCIUM
  13. FLUTICASONE PROPIONATE [Concomitant]
     Active Substance: FLUTICASONE PROPIONATE
  14. FUROSEMIDE [Concomitant]
     Active Substance: FUROSEMIDE
  15. HYDROXYCHLOROQUINE SULFATE [Concomitant]
     Active Substance: HYDROXYCHLOROQUINE SULFATE
  16. LISINOPRIL [Concomitant]
     Active Substance: LISINOPRIL
  17. NUCALA [Concomitant]
     Active Substance: MEPOLIZUMAB
  18. COQ [Concomitant]
  19. ZYRTEC [Concomitant]
     Active Substance: CETIRIZINE HYDROCHLORIDE
  20. NOVOLIN L [Concomitant]
     Active Substance: INSULIN HUMAN
  21. GABAPENTIN [Concomitant]
     Active Substance: GABAPENTIN
  22. ACETAMINOPHEN [Concomitant]
     Active Substance: ACETAMINOPHEN
  23. VITAMIN B [Concomitant]
     Active Substance: VITAMIN B
  24. VITAMINS [Concomitant]
     Active Substance: VITAMINS
  25. LEVALBUTEROL [Concomitant]
     Active Substance: LEVALBUTEROL
  26. MIRENA [Concomitant]
     Active Substance: LEVONORGESTREL
  27. SODIUM CHLORIDE [Concomitant]
     Active Substance: SODIUM CHLORIDE
  28. ZOLPIDEM TARTRATE [Concomitant]
     Active Substance: ZOLPIDEM TARTRATE
  29. PROBIOTIC BABY [Concomitant]
  30. BASAGLAR KWIKPEN [Concomitant]
     Active Substance: INSULIN GLARGINE
  31. NEXIUM [Concomitant]
     Active Substance: ESOMEPRAZOLE MAGNESIUM
  32. MAGNESIUM [Concomitant]
     Active Substance: MAGNESIUM
  33. VITAMIN C [Concomitant]
     Active Substance: ASCORBIC ACID
  34. ALBUTEROL SULFATE [Concomitant]
     Active Substance: ALBUTEROL SULFATE
  35. EPIPEN [Concomitant]
     Active Substance: EPINEPHRINE
  36. LEVOTHYROXINE SODIUM [Concomitant]
     Active Substance: LEVOTHYROXINE SODIUM
  37. PATADAY [Concomitant]
     Active Substance: OLOPATADINE HYDROCHLORIDE
     Dosage: UNK UNK, QD
     Route: 065
  38. MONTELUKAST SODIUM [Concomitant]
     Active Substance: MONTELUKAST SODIUM
  39. LIDOCAINE [Concomitant]
     Active Substance: LIDOCAINE
  40. SYSTANE BALANCE [Concomitant]
     Active Substance: PROPYLENE GLYCOL

REACTIONS (2)
  - Cancer in remission [Unknown]
  - Nasopharyngitis [Unknown]
